FAERS Safety Report 9892108 (Version 1)
Quarter: 2014Q1

REPORT INFORMATION
  Report Type: Spontaneous
  Country: JP (occurrence: JP)
  Receive Date: 20140212
  Receipt Date: 20140212
  Transmission Date: 20141002
  Serious: Yes (Hospitalization)
  Sender: FDA-Public Use
  Company Number: JP-GLAXOSMITHKLINE-B0967708A

PATIENT
  Age: 72 Year
  Sex: Male

DRUGS (3)
  1. REQUIP [Suspect]
     Indication: PARKINSON^S DISEASE
     Dosage: 2MG THREE TIMES PER DAY
     Route: 048
  2. NEODOPASTON [Concomitant]
     Route: 048
  3. ANTIBACTERIALS [Concomitant]
     Route: 065

REACTIONS (3)
  - Pneumonia [Unknown]
  - Renal impairment [Unknown]
  - Activated partial thromboplastin time shortened [Unknown]
